FAERS Safety Report 11248070 (Version 1)
Quarter: 2015Q3

REPORT INFORMATION
  Report Type: Spontaneous
  Country: US (occurrence: None)
  Receive Date: 20150707
  Receipt Date: 20150707
  Transmission Date: 20151125
  Serious: Yes (Hospitalization)
  Sender: FDA-Public Use
  Company Number: None

PATIENT
  Age: 68 Year
  Sex: Male

DRUGS (1)
  1. CARBIDOPA/LEVODOPA [Suspect]
     Active Substance: CARBIDOPA\LEVODOPA
     Indication: PARKINSON^S DISEASE
     Route: 048
     Dates: start: 20140210, end: 20150703

REACTIONS (7)
  - Delirium [None]
  - Movement disorder [None]
  - Agitation [None]
  - Accidental overdose [None]
  - Incorrect drug dosage form administered [None]
  - Psychotic disorder [None]
  - Confusional state [None]

NARRATIVE: CASE EVENT DATE: 20150602
